FAERS Safety Report 18924243 (Version 1)
Quarter: 2021Q1

REPORT INFORMATION
  Report Type: Spontaneous
  Country: DE (occurrence: DE)
  Receive Date: 20210222
  Receipt Date: 20210222
  Transmission Date: 20210420
  Serious: Yes (Life-Threatening, Hospitalization, Other)
  Sender: FDA-Public Use
  Company Number: DE-PFIZER INC-2021164473

PATIENT

DRUGS (1)
  1. CYTOTEC [Suspect]
     Active Substance: MISOPROSTOL
     Indication: LABOUR INDUCTION
     Dosage: IN TOTAL
     Route: 064
     Dates: start: 20200623, end: 20200623

REACTIONS (5)
  - Haemorrhage foetal [Unknown]
  - Foetal heart rate abnormal [Unknown]
  - Oxygen saturation decreased [Unknown]
  - Foetal exposure during delivery [Unknown]
  - Foetal heart rate decreased [Unknown]

NARRATIVE: CASE EVENT DATE: 202006
